FAERS Safety Report 6829411-1 (Version None)
Quarter: 2010Q3

REPORT INFORMATION
  Report Type: 
  Country: None (occurrence: None)
  Receive Date: 20100709
  Receipt Date: 20070309
  Transmission Date: 20110219
  Serious: Yes (Other)
  Sender: FDA-Public Use
  Company Number: US-PFIZER INC-2007019281

PATIENT
  Sex: Male

DRUGS (2)
  1. CHANTIX [Suspect]
     Indication: SMOKING CESSATION THERAPY
     Dates: start: 20061201, end: 20070301
  2. ANTIHYPERTENSIVES [Concomitant]

REACTIONS (4)
  - ABNORMAL DREAMS [None]
  - DIABETES MELLITUS [None]
  - NAUSEA [None]
  - VISION BLURRED [None]
